FAERS Safety Report 20199192 (Version 2)
Quarter: 2022Q1

REPORT INFORMATION
  Report Type: Spontaneous
  Country: US (occurrence: None)
  Receive Date: 20211217
  Receipt Date: 20220105
  Transmission Date: 20220424
  Serious: Yes (Hospitalization, Other)
  Sender: FDA-Public Use
  Company Number: 2021A869403

PATIENT
  Age: 876 Month
  Sex: Male
  Weight: 111.7 kg

DRUGS (14)
  1. FARXIGA [Suspect]
     Active Substance: DAPAGLIFLOZIN PROPANEDIOL
     Indication: Type 2 diabetes mellitus
     Route: 048
     Dates: start: 202108, end: 202110
  2. PROTONIX [Concomitant]
     Active Substance: PANTOPRAZOLE SODIUM
  3. ZOFRAN [Concomitant]
     Active Substance: ONDANSETRON HYDROCHLORIDE
  4. ONDANSETRON [Concomitant]
     Active Substance: ONDANSETRON
     Dosage: 8 MG TABLET, SIG; 1 TABLET ORALLY EVERY 6 HOURS
     Route: 065
  5. ESCITALOPRAM OXALATE [Concomitant]
     Active Substance: ESCITALOPRAM OXALATE
     Dosage: 20 MG TABLET, SIG: 1 TABLET ORALLY ONCE DAY
     Route: 065
  6. OLMESARTAN MEDOXOMIL [Concomitant]
     Active Substance: OLMESARTAN MEDOXOMIL
     Dosage: 40 MG TABLET, SIG: 1 TABLET ORALLY ONCE A DAY
     Route: 065
  7. TADALAFIL [Concomitant]
     Active Substance: TADALAFIL
     Dosage: SIG: TAKE 1 TABLET BY MOUTH EVERY DAY
     Route: 065
  8. HYDROCORTISONE [Concomitant]
     Active Substance: HYDROCORTISONE
     Dosage: 1 APPLICATION EXTERNALLY TWICE A DAY
     Route: 065
     Dates: start: 20210630
  9. METFORMIN [Concomitant]
     Active Substance: METFORMIN HYDROCHLORIDE
     Dosage: 500 MG , SIG: 2 TABLETS ORAL TWICE A DAY
     Route: 065
  10. MOMETASONE FUROATE [Concomitant]
     Active Substance: MOMETASONE FUROATE
     Dosage: 0.1 % CREAM, SIG: 1 APPLICATION EXTERNALLY BID PRN
     Route: 065
     Dates: start: 20200427
  11. LEVOFLOXACIN [Concomitant]
     Active Substance: LEVOFLOXACIN
     Dosage: SOD MA TABLET, SG: 1 TABLET ORALLY ONCE A DAY
     Route: 065
     Dates: start: 20211115
  12. FAMOTIDINE [Concomitant]
     Active Substance: FAMOTIDINE
     Dosage: 40 MG TABLET, SIG: 1 TABLET ORALLY TWICE DAY
     Route: 048
     Dates: start: 20211109
  13. ALPRAZOLAM [Concomitant]
     Active Substance: ALPRAZOLAM
     Dosage: 0.5 MG TABLET, SIG: TAKE 1/2 TO ONE TABLET THREE TIMES A DAY AS NEEDED ORALLY 30 DAYS
     Route: 065
     Dates: start: 20211221
  14. PROMETHAZINE HCI [Concomitant]
     Dosage: 25 MG SUPPOSITORY SIG: 1 APPLICATION AS NEEDED RECTAL FOUR TIMES A DAY (QID) AS NEEDED (PRN)
     Dates: start: 20211109

REACTIONS (4)
  - Pancreatitis [Recovered/Resolved]
  - Urinary tract infection [Recovered/Resolved]
  - Fatigue [Recovering/Resolving]
  - Abnormal loss of weight [Recovering/Resolving]

NARRATIVE: CASE EVENT DATE: 20211001
